FAERS Safety Report 5291133-9 (Version None)
Quarter: 2007Q2

REPORT INFORMATION
  Report Type: 
  Country: None (occurrence: None)
  Receive Date: 20070402
  Receipt Date: 20070319
  Transmission Date: 20071010
  Serious: Yes (Other)
  Sender: FDA-Public Use
  Company Number: FSC_0077_2007

PATIENT
  Age: 62 Year
  Sex: Female
  Weight: 71.5 kg

DRUGS (4)
  1. ISOPTIN [Suspect]
     Indication: HYPERTENSION
     Dosage: 120 MG BID PO
     Route: 048
     Dates: start: 20070127, end: 20070213
  2. ISOPTIN [Suspect]
     Indication: HYPERTENSION
     Dosage: 120 MG QD PO
     Route: 048
     Dates: start: 20070214, end: 20070221
  3. BLOPRESS PLUS [Concomitant]
  4. BUDES EASYHALER [Concomitant]

REACTIONS (3)
  - CONSTIPATION [None]
  - HAEMORRHOIDS [None]
  - VENOUS THROMBOSIS [None]
